FAERS Safety Report 10227375 (Version 1)
Quarter: 2014Q2

REPORT INFORMATION
  Report Type: Spontaneous
  Country: US (occurrence: None)
  Receive Date: 20140609
  Receipt Date: 20140609
  Transmission Date: 20141212
  Serious: No
  Sender: FDA-Public Use
  Company Number: None

PATIENT
  Age: 58 Year
  Sex: Male

DRUGS (3)
  1. SOVALDI [Suspect]
     Indication: HEPATITIS C
     Dosage: 1 PILL, QD, ORAL
     Route: 048
  2. PEGASYS 180MCG [Concomitant]
  3. RIBASPHERE 600MG [Concomitant]

REACTIONS (1)
  - Thrombosis [None]
